FAERS Safety Report 6984646-2 (Version None)
Quarter: 2010Q3

REPORT INFORMATION
  Report Type: 
  Country: None (occurrence: None)
  Receive Date: 20100913
  Receipt Date: 20100827
  Transmission Date: 20110219
  Serious: Yes (Hospitalization, Other)
  Sender: FDA-Public Use
  Company Number: 2010002398

PATIENT
  Age: 38 Year
  Sex: Female

DRUGS (2)
  1. ERLOTINIB HYDROCHLORIDE [Suspect]
     Indication: BREAST CANCER
     Dosage: (150 MG, QD), ORAL
     Route: 048
     Dates: start: 20100502, end: 20100523
  2. BENDAMUSTINE(BENDAMUSTINE) [Suspect]
     Indication: BREAST CANCER
     Dosage: (120 MG, QD), ORAL; 120 MG/M2, 228 MG / 120 MG/M^2), INTRAVENOUS
     Route: 042
     Dates: start: 20100503, end: 20100504

REACTIONS (10)
  - BREAST DISCHARGE [None]
  - CHEST DISCOMFORT [None]
  - DECREASED APPETITE [None]
  - DIARRHOEA [None]
  - FATIGUE [None]
  - HAEMOGLOBIN DECREASED [None]
  - LYMPHOPENIA [None]
  - NIPPLE EXUDATE BLOODY [None]
  - OPPORTUNISTIC INFECTION [None]
  - PYREXIA [None]
